FAERS Safety Report 10609055 (Version 1)
Quarter: 2014Q4

REPORT INFORMATION
  Report Type: Report from Study
  Country: NL (occurrence: NL)
  Receive Date: 20141126
  Receipt Date: 20141126
  Transmission Date: 20150529
  Serious: Yes (Hospitalization, Other)
  Sender: FDA-Public Use
  Company Number: NL-AMGEN-NLDSL2014088564

PATIENT
  Age: 54 Year
  Sex: Female

DRUGS (1)
  1. ARANESP [Suspect]
     Active Substance: DARBEPOETIN ALFA
     Indication: PRODUCT USED FOR UNKNOWN INDICATION
     Dosage: 500 MG, Q3WK
     Route: 065
     Dates: start: 20140516, end: 20140829

REACTIONS (4)
  - Pleural infection [Unknown]
  - Fatigue [Not Recovered/Not Resolved]
  - Pleural effusion [Unknown]
  - Dyspnoea [Not Recovered/Not Resolved]
